FAERS Safety Report 8199331-1 (Version None)
Quarter: 2012Q1

REPORT INFORMATION
  Report Type: 
  Country: None (occurrence: None)
  Receive Date: 20120309
  Receipt Date: 20120227
  Transmission Date: 20120608
  Serious: Yes (Disabling, Other)
  Sender: FDA-Public Use
  Company Number: US-PFIZER INC-2012025653

PATIENT
  Sex: Female
  Weight: 58 kg

DRUGS (10)
  1. TYLENOL [Suspect]
     Indication: HEADACHE
     Dosage: UNK
  2. LYRICA [Suspect]
     Indication: MYALGIA
  3. IBUPROFEN [Suspect]
     Indication: HEADACHE
     Dosage: UNK
  4. VALIUM [Suspect]
     Indication: HEADACHE
     Dosage: UNK
  5. TRAMADOL HCL [Suspect]
     Indication: HEADACHE
     Dosage: UNK
  6. METHYLPREDNISOLONE [Concomitant]
     Indication: MYALGIA
     Dosage: 4 MG, DAILY
  7. VITAMIN D [Concomitant]
     Dosage: UNK
  8. LYRICA [Suspect]
     Indication: FIBROMYALGIA
  9. LYRICA [Suspect]
     Indication: NEURALGIA
     Dosage: UNK
     Route: 048
     Dates: start: 20100601, end: 20100601
  10. ERGOCALCIFEROL [Concomitant]

REACTIONS (5)
  - MIXED CONNECTIVE TISSUE DISEASE [None]
  - DIPLOPIA [None]
  - DRUG INEFFECTIVE [None]
  - HEADACHE [None]
  - MIGRAINE WITH AURA [None]
